FAERS Safety Report 17018133 (Version 1)
Quarter: 2019Q4

REPORT INFORMATION
  Report Type: Spontaneous
  Country: IT (occurrence: GB)
  Receive Date: 20191111
  Receipt Date: 20191111
  Transmission Date: 20200122
  Serious: Yes (Hospitalization, Other)
  Sender: FDA-Public Use
  Company Number: IT-SUNOVION-2019SUN004917

PATIENT

DRUGS (8)
  1. LATUDA [Suspect]
     Active Substance: LURASIDONE HYDROCHLORIDE
     Dosage: 74 MG, QD
     Route: 048
     Dates: end: 2017
  2. AMISULPRIDE [Concomitant]
     Active Substance: AMISULPRIDE
     Dosage: 800 MG, QD
     Dates: end: 201707
  3. FERROUS SULFATE. [Concomitant]
     Active Substance: FERROUS SULFATE
  4. LATUDA [Suspect]
     Active Substance: LURASIDONE HYDROCHLORIDE
     Indication: SCHIZOPHRENIA
     Dosage: 37 MG, QD
     Route: 048
     Dates: start: 20170724, end: 20170727
  5. LAMOTRIGINE. [Concomitant]
     Active Substance: LAMOTRIGINE
  6. HYOSCINE HYDROBROMIDE [Concomitant]
     Active Substance: SCOPOLAMINE HYDROBROMIDE
  7. HALOPERIDOL. [Concomitant]
     Active Substance: HALOPERIDOL
  8. FOLIC ACID. [Concomitant]
     Active Substance: FOLIC ACID
     Dosage: 800 MG, QD
     Dates: end: 201707

REACTIONS (3)
  - Drug ineffective [Recovering/Resolving]
  - Wrong technique in product usage process [Unknown]
  - Mental impairment [Unknown]

NARRATIVE: CASE EVENT DATE: 20170724
